FAERS Safety Report 24882760 (Version 1)
Quarter: 2025Q1

REPORT INFORMATION
  Report Type: Spontaneous
  Country: US (occurrence: US)
  Receive Date: 20250124
  Receipt Date: 20250124
  Transmission Date: 20250408
  Serious: No
  Sender: ELI LILLY AND COMPANY
  Company Number: US-ELI_LILLY_AND_COMPANY-US202501013804

PATIENT
  Age: 56 Year
  Sex: Female

DRUGS (2)
  1. RETEVMO [Suspect]
     Active Substance: SELPERCATINIB
     Indication: Medullary thyroid cancer
     Dosage: 120 MG, BID (ONE 40MG CAPSULE AND ONE 80NG CAPSULE)
     Route: 065
  2. RETEVMO [Suspect]
     Active Substance: SELPERCATINIB
     Dosage: 120 MG, BID
     Route: 065
     Dates: start: 202501

REACTIONS (4)
  - Incorrect product dosage form administered [Unknown]
  - Illness [Recovered/Resolved]
  - Taste disorder [Recovered/Resolved]
  - Vomiting [Recovered/Resolved]
